FAERS Safety Report 9298440 (Version 1)
Quarter: 2013Q1

REPORT INFORMATION
  Report Type: Spontaneous
  Country: US (occurrence: None)
  Receive Date: 20121227
  Receipt Date: 20121227
  Transmission Date: 20140127
  Serious: No
  Sender: FDA-Public Use
  Company Number: PHEH2012US019563

PATIENT
  Age: 12 Year
  Sex: Female

DRUGS (2)
  1. AFINITOR [Suspect]
     Indication: TUBEROUS SCLEROSIS
     Route: 048
     Dates: start: 20120914
  2. CARBAMAZEPINE (CARBAMAZEPINE) [Concomitant]

REACTIONS (5)
  - Vitamin D deficiency [None]
  - Migraine [None]
  - Rash [None]
  - Cough [None]
  - Stomatitis [None]
